FAERS Safety Report 21625388 (Version 2)
Quarter: 2022Q4

REPORT INFORMATION
  Report Type: Spontaneous
  Country: JP (occurrence: JP)
  Receive Date: 20221122
  Receipt Date: 20221216
  Transmission Date: 20230113
  Serious: Yes (Other)
  Sender: FDA-Public Use
  Company Number: JP-002147023-NVSJ2022JP101431

PATIENT
  Sex: Male

DRUGS (1)
  1. NEORAL [Suspect]
     Active Substance: CYCLOSPORINE
     Indication: Transplantation complication
     Dosage: UNK
     Route: 048

REACTIONS (3)
  - Graft versus host disease in lung [Unknown]
  - Graft versus host disease oral [Unknown]
  - Graft versus host disease in eye [Unknown]
